FAERS Safety Report 8998623 (Version 1)
Quarter: 2013Q1

REPORT INFORMATION
  Report Type: Report from Study
  Country: CY (occurrence: CY)
  Receive Date: 20130103
  Receipt Date: 20130103
  Transmission Date: 20140127
  Serious: Yes (Death)
  Sender: FDA-Public Use
  Company Number: PHHY2013CY000955

PATIENT
  Age: 71 Year
  Sex: Female

DRUGS (1)
  1. ZOMETA [Suspect]
     Indication: MUSCULOSKELETAL DISORDER
     Dosage: 4 MG, UNK
     Route: 042
     Dates: start: 20110418, end: 20121202

REACTIONS (1)
  - Breast cancer [Fatal]
